FAERS Safety Report 19265190 (Version 2)
Quarter: 2021Q2

REPORT INFORMATION
  Report Type: Spontaneous
  Country: US (occurrence: US)
  Receive Date: 20210517
  Receipt Date: 20210611
  Transmission Date: 20210717
  Serious: Yes (Life-Threatening, Hospitalization, Other)
  Sender: FDA-Public Use
  Company Number: US-PFIZER INC-2021487824

PATIENT
  Age: 27 Year
  Sex: Male
  Weight: 91 kg

DRUGS (28)
  1. SUCCINYLCHOLINE CHLORIDE. [Suspect]
     Active Substance: SUCCINYLCHOLINE CHLORIDE
     Dosage: 120 MG
     Route: 042
  2. SEVOFLURANE. [Suspect]
     Active Substance: SEVOFLURANE
     Indication: GENERAL ANAESTHESIA
     Dosage: UNK
  3. ALTHAEA OFFICINALIS [Concomitant]
     Dosage: UNK, DAILY (EVERY NIGHT AT BEDTIME)
  4. MELATONIN [Concomitant]
     Active Substance: MELATONIN
     Dosage: 3 MG, 1X/DAY(EVERY NIGHT AT BEDTIME)
  5. LAMOTRIGINE. [Concomitant]
     Active Substance: LAMOTRIGINE
     Dosage: 200 MG, 2X/DAY
  6. KETAMINE HCL [Suspect]
     Active Substance: KETAMINE HYDROCHLORIDE
     Indication: GENERAL ANAESTHESIA
     Dosage: 300 MG
     Route: 030
  7. PROPANOLOL HCL [Interacting]
     Active Substance: PROPRANOLOL HYDROCHLORIDE
     Indication: ABNORMAL BEHAVIOUR
     Dosage: 20 MG, 3X/DAY
  8. PROPOFOL. [Suspect]
     Active Substance: PROPOFOL
     Dosage: 50 MG (ADDITIONAL DOSE )
     Route: 040
  9. GUANFACINE. [Interacting]
     Active Substance: GUANFACINE
     Indication: ABNORMAL BEHAVIOUR
     Dosage: 1 MG, 3X/DAY
  10. HALOPERIDOL. [Concomitant]
     Active Substance: HALOPERIDOL
     Dosage: 5 MG, 2X/DAY
  11. CANNABIS SATIVA [Concomitant]
     Active Substance: CANNABIS SATIVA FLOWERING TOP
     Dosage: UNK, DAILY (EVERY NIGHT AT BEDTIME)
  12. PAROXETINE. [Concomitant]
     Active Substance: PAROXETINE
     Dosage: 40 MG, 1X/DAY (EVERY NIGHT AT BEDTIME )
  13. LACOSAMIDE. [Concomitant]
     Active Substance: LACOSAMIDE
     Dosage: 100 MG, 2X/DAY
  14. GLYCOPYRROLATE [GLYCOPYRRONIUM] [Concomitant]
     Active Substance: GLYCOPYRRONIUM
     Dosage: 100 UG
     Route: 040
  15. GLYCOPYRROLATE [GLYCOPYRRONIUM] [Concomitant]
     Active Substance: GLYCOPYRRONIUM
     Dosage: 100 UG (ADDITIONAL)
     Route: 040
  16. ZIPRASIDONE. [Concomitant]
     Active Substance: ZIPRASIDONE
     Dosage: 60 MG, 2X/DAY
  17. OXYGEN. [Concomitant]
     Active Substance: OXYGEN
     Dosage: 12 L (FREQ:1 MIN;VIA THE ANESTHETIC FACEMASK)
  18. SALBUTAMOL [Concomitant]
     Active Substance: ALBUTEROL
     Dosage: UNK, 2X/DAY (AS NEEDED)
     Route: 055
  19. PROPOFOL. [Suspect]
     Active Substance: PROPOFOL
     Indication: GENERAL ANAESTHESIA
     Dosage: 100 MG
     Route: 040
  20. SUCCINYLCHOLINE CHLORIDE. [Suspect]
     Active Substance: SUCCINYLCHOLINE CHLORIDE
     Indication: PARALYSIS
     Dosage: 200 MG
     Route: 042
  21. ZONISAMIDE. [Concomitant]
     Active Substance: ZONISAMIDE
     Dosage: 100 MG, 2X/DAY
  22. MIDAZOLAM. [Concomitant]
     Active Substance: MIDAZOLAM
     Dosage: 1 MG
     Route: 040
  23. OLANZAPINE. [Concomitant]
     Active Substance: OLANZAPINE
     Dosage: 10 MG, 2X/DAY
  24. FENTANYL CITRATE. [Suspect]
     Active Substance: FENTANYL CITRATE
     Dosage: 50 UG
     Route: 040
  25. FLUVOXAMINE [Interacting]
     Active Substance: FLUVOXAMINE
     Dosage: 150 MG, 3X/DAY (EVERY 8 HOURS)
  26. JUNIPERUS OXYCEDRUS [Concomitant]
     Dosage: UNK, 1X/DAY (EVERY NIGHT AT BEDTIME)
  27. CIMICIFUGA RACEMOSA [Concomitant]
     Active Substance: BLACK COHOSH
     Dosage: UNK, DAILY (EVERY NIGHT AT BEDTIME)
  28. ALBUTEROL [SALBUTAMOL] [Concomitant]
     Active Substance: ALBUTEROL
     Dosage: UNK, 2X/DAY

REACTIONS (6)
  - Pulseless electrical activity [Recovered/Resolved]
  - Overdose [Recovered/Resolved]
  - Hypotension [Recovered/Resolved]
  - Bradycardia [Recovered/Resolved]
  - Drug interaction [Recovered/Resolved]
  - Cardiac arrest [Recovered/Resolved]
